FAERS Safety Report 25240502 (Version 3)
Quarter: 2025Q2

REPORT INFORMATION
  Report Type: Report from Study
  Country: US (occurrence: US)
  Receive Date: 20250425
  Receipt Date: 20250626
  Transmission Date: 20250717
  Serious: Yes (Hospitalization, Other)
  Sender: GLAXOSMITHKLINE
  Company Number: US-GSK-US2025048377

PATIENT
  Age: 32 Year
  Sex: Female

DRUGS (2)
  1. NIRAPARIB [Suspect]
     Active Substance: NIRAPARIB
     Indication: Neoplasm malignant
     Dosage: 200 MG, QD
  2. NIRAPARIB [Suspect]
     Active Substance: NIRAPARIB
     Indication: Brain neoplasm malignant

REACTIONS (4)
  - Hospitalisation [Not Recovered/Not Resolved]
  - Surgery [Unknown]
  - Drug ineffective [Unknown]
  - Product use in unapproved indication [Unknown]

NARRATIVE: CASE EVENT DATE: 20250201
